FAERS Safety Report 10410220 (Version 2)
Quarter: 2014Q3

REPORT INFORMATION
  Report Type: Spontaneous
  Country: JP (occurrence: JP)
  Receive Date: 20140826
  Receipt Date: 20140826
  Transmission Date: 20150326
  Serious: Yes (Death, Hospitalization, Other)
  Sender: FDA-Public Use
  Company Number: JP-ROCHE-1442202

PATIENT
  Age: 50 Year
  Sex: Female
  Weight: 57 kg

DRUGS (4)
  1. LOXONIN [Concomitant]
     Active Substance: LOXOPROFEN SODIUM
     Indication: ANALGESIC THERAPY
     Route: 048
     Dates: start: 20140228
  2. GEMCITABINE HYDROCHLORIDE. [Concomitant]
     Active Substance: GEMCITABINE HYDROCHLORIDE
     Indication: OVARIAN CANCER METASTATIC
     Route: 041
     Dates: start: 20140130, end: 20140612
  3. AVASTIN [Suspect]
     Active Substance: BEVACIZUMAB
     Indication: OVARIAN CANCER METASTATIC
     Route: 041
     Dates: start: 20140227, end: 20140612
  4. DENOTAS [Suspect]
     Active Substance: CALCIUM CARBONATE\CHOLECALCIFEROL\MAGNESIUM CARBONATE
     Indication: BLOOD CALCIUM DECREASED
     Route: 048
     Dates: start: 20140614

REACTIONS (10)
  - Rectal ulcer [Unknown]
  - Pseudomembranous colitis [Unknown]
  - Peritonitis [Fatal]
  - Drug eruption [Recovered/Resolved]
  - Gastritis erosive [Unknown]
  - Intestinal perforation [Fatal]
  - Rectal perforation [Not Recovered/Not Resolved]
  - Multi-organ failure [Fatal]
  - Sepsis [Fatal]
  - Disseminated intravascular coagulation [Fatal]

NARRATIVE: CASE EVENT DATE: 201406
